FAERS Safety Report 12837291 (Version 1)
Quarter: 2016Q4

REPORT INFORMATION
  Report Type: Spontaneous
  Country: US (occurrence: US)
  Receive Date: 20161011
  Receipt Date: 20161011
  Transmission Date: 20170207
  Serious: No
  Sender: FDA-Public Use
  Company Number: US-TEIKOKU PHARMA USA-TPU2016-00646

PATIENT
  Age: 78 Year
  Sex: Female
  Weight: 110.32 kg

DRUGS (5)
  1. LIDOCAINE PATCH [Suspect]
     Active Substance: LIDOCAINE
     Indication: SPINAL COLUMN STENOSIS
     Dosage: ONE PATCH EVERY 24 HRS AS NEEDED, PLACE THE PATCH ON THE SKIN FOR 12 HOURS THEN OFF FOR 12 HOURS
     Route: 061
     Dates: start: 201412, end: 20160924
  2. LIDOCAINE PATCH [Suspect]
     Active Substance: LIDOCAINE
     Indication: PAIN
  3. LEVEMIR [Concomitant]
     Active Substance: INSULIN DETEMIR
     Indication: DIABETES MELLITUS
     Dates: start: 2011
  4. HYDROCODONE BITARTRATE AND ACETAMINOPHEN [Concomitant]
     Active Substance: ACETAMINOPHEN\HYDROCODONE BITARTRATE
     Indication: PAIN
     Dosage: 2 TABLETS IN THE MORNING AND TWO AT NIGHT BY MOUTH TAKING HALF OF PILL IN THE MORNING AND HALF AT NI
  5. HUMALOG [Concomitant]
     Active Substance: INSULIN LISPRO
     Indication: DIABETES MELLITUS
     Dosage: TAKE WITH MEALS, INJECTION 4-5 UNITS
     Dates: start: 2016

REACTIONS (4)
  - Pain [Recovering/Resolving]
  - Discomfort [Recovered/Resolved]
  - Sensory disturbance [Recovered/Resolved]
  - Incorrect drug administration duration [Unknown]

NARRATIVE: CASE EVENT DATE: 20160924
